FAERS Safety Report 13775184 (Version 1)
Quarter: 2017Q3

REPORT INFORMATION
  Report Type: Spontaneous
  Country: SI (occurrence: SI)
  Receive Date: 20170720
  Receipt Date: 20170720
  Transmission Date: 20171127
  Serious: Yes (Death)
  Sender: FDA-Public Use
  Company Number: SI-BAYER-2017-137273

PATIENT
  Age: 73 Year
  Sex: Female
  Weight: 80 kg

DRUGS (19)
  1. ULTOP [Concomitant]
     Dosage: UNK
  2. ULTRAVIST [Suspect]
     Active Substance: IOPROMIDE
     Indication: DIAGNOSTIC PROCEDURE
     Dosage: 70 ML, ONCE ONLY ONE DOSE WAS ADMINISTERED
     Route: 040
  3. SIRDALUD [Concomitant]
     Active Substance: TIZANIDINE
     Dosage: UNK
  4. BERODUAL N [Concomitant]
     Active Substance: FENOTEROL HYDROBROMIDE\IPRATROPIUM BROMIDE
     Dosage: UNK
  5. LASIX [Concomitant]
     Active Substance: FUROSEMIDE
     Dosage: UNK
  6. LEKADOL [Concomitant]
     Active Substance: ACETAMINOPHEN
     Dosage: UNK
     Route: 048
  7. AMLOPIN [Concomitant]
     Active Substance: AMLODIPINE BESYLATE
     Dosage: UNK
  8. APAURIN [Concomitant]
     Active Substance: DIAZEPAM
     Dosage: UNK
  9. AVELOX [Concomitant]
     Active Substance: MOXIFLOXACIN HYDROCHLORIDE
     Dosage: UNK
  10. OLICARD [Concomitant]
     Active Substance: ISOSORBIDE MONONITRATE
     Dosage: UNK
  11. PANTOPRAZOLE [Concomitant]
     Active Substance: PANTOPRAZOLE
     Dosage: UNK
     Route: 048
  12. CLARITINE [Concomitant]
     Active Substance: LORATADINE
     Dosage: UNK
  13. MICARDIS [Concomitant]
     Active Substance: TELMISARTAN
     Dosage: UNK
  14. SERETIDE [Concomitant]
     Active Substance: FLUTICASONE PROPIONATE\SALMETEROL XINAFOATE
     Dosage: UNK
  15. SPIRIVA [Concomitant]
     Active Substance: TIOTROPIUM BROMIDE MONOHYDRATE
     Dosage: UNK
  16. MEDROL [METHYLPREDNISOLONE] [Concomitant]
     Dosage: UNK
     Route: 048
  17. ZALDIAR [Concomitant]
     Active Substance: ACETAMINOPHEN\TRAMADOL HYDROCHLORIDE
     Dosage: UNK
  18. ORMIDOL [Concomitant]
     Active Substance: ATENOLOL
     Dosage: UNK
  19. CARDIOASPIRIN [Concomitant]
     Active Substance: ASPIRIN
     Dosage: UNK

REACTIONS (1)
  - Hypersensitivity [Fatal]

NARRATIVE: CASE EVENT DATE: 20170628
